FAERS Safety Report 4876353-7 (Version None)
Quarter: 2006Q1

REPORT INFORMATION
  Report Type: 
  Country: None (occurrence: None)
  Receive Date: 20060106
  Receipt Date: 20060103
  Transmission Date: 20060701
  Serious: Yes (Death, Hospitalization, Other)
  Sender: FDA-Public Use
  Company Number: 200510486BNE

PATIENT
  Age: 75 Year
  Sex: Female

DRUGS (7)
  1. ASPIRIN [Suspect]
  2. LANSOPRAZOLE [Suspect]
  3. LISINOPRIL [Suspect]
  4. ATENOLOL [Suspect]
  5. GLYCERYL TRINITRATE [Suspect]
  6. FRUSEMIDE [Concomitant]
  7. ATORVASTATIN [Suspect]

REACTIONS (10)
  - ACUTE MYOCARDIAL INFARCTION [None]
  - COLON CANCER [None]
  - COLONIC POLYP [None]
  - LARYNGEAL OEDEMA [None]
  - LARYNGOSPASM [None]
  - LOWER RESPIRATORY TRACT INFECTION [None]
  - OBSTRUCTIVE AIRWAYS DISORDER [None]
  - OVERDOSE [None]
  - PULMONARY OEDEMA [None]
  - STRIDOR [None]
